FAERS Safety Report 13021476 (Version 1)
Quarter: 2016Q4

REPORT INFORMATION
  Report Type: Spontaneous
  Country: US (occurrence: US)
  Receive Date: 20161213
  Receipt Date: 20161213
  Transmission Date: 20170207
  Serious: Yes (Other)
  Sender: FDA-Public Use
  Company Number: US-ASTRAZENECA-2016SF29948

PATIENT
  Sex: Female
  Weight: 82.6 kg

DRUGS (4)
  1. SEROQUEL XR [Suspect]
     Active Substance: QUETIAPINE FUMARATE
     Indication: PROPHYLAXIS
     Dosage: 300.0MG UNKNOWN
     Route: 048
     Dates: start: 2013
  2. SEROQUEL XR [Suspect]
     Active Substance: QUETIAPINE FUMARATE
     Indication: ANTIDEPRESSANT THERAPY
     Dosage: 150.0MG UNKNOWN
     Route: 048
  3. SEROQUEL XR [Suspect]
     Active Substance: QUETIAPINE FUMARATE
     Indication: PROPHYLAXIS
     Dosage: 150.0MG UNKNOWN
     Route: 048
  4. SEROQUEL XR [Suspect]
     Active Substance: QUETIAPINE FUMARATE
     Indication: ANTIDEPRESSANT THERAPY
     Dosage: 300.0MG UNKNOWN
     Route: 048
     Dates: start: 2013

REACTIONS (13)
  - Blood glucose increased [Unknown]
  - Vision blurred [Unknown]
  - Blood cholesterol increased [Unknown]
  - Sinusitis [Unknown]
  - Weight increased [Unknown]
  - Anaphylactic shock [Unknown]
  - Paranoia [Unknown]
  - Urticaria [Unknown]
  - Visual impairment [Unknown]
  - Swelling [Unknown]
  - Dyspnoea [Unknown]
  - Thyroid disorder [Unknown]
  - Product use issue [Unknown]
